FAERS Safety Report 4786957-8 (Version None)
Quarter: 2005Q4

REPORT INFORMATION
  Report Type: 
  Country: None (occurrence: None)
  Receive Date: 20051004
  Receipt Date: 20050929
  Transmission Date: 20060501
  Serious: Yes (Death, Other)
  Sender: FDA-Public Use
  Company Number: PHBS2005JP14395

PATIENT
  Age: 60 Year
  Sex: Male

DRUGS (8)
  1. CYCLOSPORINE [Suspect]
     Indication: STEM CELL TRANSPLANT
     Dosage: 3 MG/KG/D
     Route: 065
  2. CYCLOSPORINE [Suspect]
     Route: 065
  3. CYTARABINE [Concomitant]
  4. IDARUBICIN HCL [Concomitant]
  5. FLUDARABINE PHOSPHATE [Concomitant]
     Dosage: 30 MG/M2/D
     Route: 065
  6. BUSULFAN [Concomitant]
     Dosage: 4 MG/KG/D
     Route: 065
  7. PREDNISOLONE [Concomitant]
     Dosage: 1 MG/KG/D
     Route: 065
  8. PREDNISOLONE [Concomitant]
     Dosage: 0.5 MG/KG/D
     Route: 065

REACTIONS (10)
  - CREATININE RENAL CLEARANCE DECREASED [None]
  - DIARRHOEA [None]
  - ERYTHEMA [None]
  - GRAFT VERSUS HOST DISEASE [None]
  - HAEMODIALYSIS [None]
  - RENAL FAILURE [None]
  - RENAL TUBULAR DISORDER [None]
  - SEPTIC SHOCK [None]
  - TUBULOINTERSTITIAL NEPHRITIS [None]
  - URINE SODIUM INCREASED [None]
